FAERS Safety Report 21037465 (Version 2)
Quarter: 2022Q3

REPORT INFORMATION
  Report Type: Spontaneous
  Country: CN (occurrence: CN)
  Receive Date: 20220703
  Receipt Date: 20220715
  Transmission Date: 20221027
  Serious: Yes (Life-Threatening, Other)
  Sender: FDA-Public Use
  Company Number: CN-MLMSERVICE-20220621-3627229-1

PATIENT
  Age: 50 Year
  Sex: Male

DRUGS (9)
  1. NIVOLUMAB [Suspect]
     Active Substance: NIVOLUMAB
     Indication: Metastases to lymph nodes
     Dosage: VD QD D1
     Route: 065
     Dates: start: 20210514, end: 20210607
  2. NIVOLUMAB [Suspect]
     Active Substance: NIVOLUMAB
     Indication: Non-small cell lung cancer stage IIIB
     Dosage: VD QD D1
     Route: 065
     Dates: start: 20210514, end: 20210514
  3. NIVOLUMAB [Suspect]
     Active Substance: NIVOLUMAB
     Indication: Metastases to the mediastinum
     Dosage: VD QD D1
     Route: 065
     Dates: start: 20210707, end: 20210707
  4. PACLITAXEL [Suspect]
     Active Substance: PACLITAXEL
     Indication: Non-small cell lung cancer stage IIIB
     Dosage: VD QD D1
     Route: 065
     Dates: start: 20210514, end: 20210514
  5. PACLITAXEL [Suspect]
     Active Substance: PACLITAXEL
     Indication: Metastases to lymph nodes
     Dosage: VD QD D1
     Route: 065
     Dates: start: 20210707, end: 20210707
  6. PACLITAXEL [Suspect]
     Active Substance: PACLITAXEL
     Indication: Metastases to the mediastinum
     Dosage: VD QD D1
     Route: 065
     Dates: start: 20210607, end: 20210607
  7. CISPLATIN [Suspect]
     Active Substance: CISPLATIN
     Indication: Non-small cell lung cancer stage IIIB
     Route: 065
     Dates: start: 20210514, end: 20210514
  8. CISPLATIN [Suspect]
     Active Substance: CISPLATIN
     Indication: Metastases to lymph nodes
     Route: 065
     Dates: start: 20210607, end: 20210607
  9. CISPLATIN [Suspect]
     Active Substance: CISPLATIN
     Indication: Metastases to the mediastinum
     Route: 065
     Dates: start: 20210707, end: 20210707

REACTIONS (1)
  - Myelosuppression [Recovered/Resolved]
